FAERS Safety Report 15482091 (Version 1)
Quarter: 2018Q4

REPORT INFORMATION
  Report Type: Spontaneous
  Country: US (occurrence: US)
  Receive Date: 20181010
  Receipt Date: 20181010
  Transmission Date: 20190205
  Serious: No
  Sender: FDA-Public Use
  Company Number: US-TEVA-824474ACC

PATIENT
  Sex: Female

DRUGS (1)
  1. EPITOL [Suspect]
     Active Substance: CARBAMAZEPINE

REACTIONS (3)
  - Bradyphrenia [Unknown]
  - Confusional state [Unknown]
  - Psychomotor skills impaired [Unknown]
